FAERS Safety Report 24387884 (Version 2)
Quarter: 2024Q4

REPORT INFORMATION
  Report Type: Spontaneous
  Country: US (occurrence: US)
  Receive Date: 20241002
  Receipt Date: 20241005
  Transmission Date: 20250114
  Serious: Yes (Death, Life-Threatening, Hospitalization, Disabling)
  Sender: AMGEN
  Company Number: US-AMGEN-USASP2024193312

PATIENT
  Age: 19 Year
  Sex: Male

DRUGS (3)
  1. BLINCYTO [Suspect]
     Active Substance: BLINATUMOMAB
     Indication: Acute lymphocytic leukaemia recurrent
     Dosage: UNK, PUMP INFUSION
     Route: 042
     Dates: start: 20240410, end: 202404
  2. BLINCYTO [Suspect]
     Active Substance: BLINATUMOMAB
     Dosage: UNK, PUMP INFUSION
     Route: 042
     Dates: start: 20240422, end: 20240425
  3. ASPARAGINASE [Concomitant]
     Active Substance: ASPARAGINASE
     Dosage: UNK
     Dates: start: 20240411

REACTIONS (7)
  - Death [Fatal]
  - Multiple organ dysfunction syndrome [Unknown]
  - Renal failure [Unknown]
  - Hepatic failure [Unknown]
  - Hypotension [Unknown]
  - Seizure [Unknown]
  - Ill-defined disorder [Unknown]

NARRATIVE: CASE EVENT DATE: 20240425
